FAERS Safety Report 4515697-5 (Version None)
Quarter: 2004Q4

REPORT INFORMATION
  Report Type: 
  Country: None (occurrence: None)
  Receive Date: 20040930
  Receipt Date: 20040608
  Transmission Date: 20050328
  Serious: No
  Sender: FDA-Public Use
  Company Number: USA-2004-0015544

PATIENT
  Age: 47 Year
  Sex: Female

DRUGS (1)
  1. SPECTRACEF [Suspect]
     Dosage: 400 MG, BID, ORAL
     Route: 048

REACTIONS (1)
  - NAUSEA [None]
